FAERS Safety Report 9720707 (Version 2)
Quarter: 2013Q4

REPORT INFORMATION
  Report Type: Spontaneous
  Country: GB (occurrence: GB)
  Receive Date: 20131129
  Receipt Date: 20131213
  Transmission Date: 20140711
  Serious: Yes (Other)
  Sender: FDA-Public Use
  Company Number: PHFR2013GB006794

PATIENT
  Age: 39 Year
  Sex: Male

DRUGS (1)
  1. GILENYA [Suspect]
     Indication: MULTIPLE SCLEROSIS
     Dosage: 0.5 MG, QD
     Route: 048
     Dates: start: 20121025

REACTIONS (4)
  - Multiple sclerosis relapse [Recovering/Resolving]
  - Mobility decreased [Recovering/Resolving]
  - Dizziness [Unknown]
  - Balance disorder [Recovering/Resolving]
